FAERS Safety Report 21574749 (Version 2)
Quarter: 2023Q1

REPORT INFORMATION
  Report Type: Report from Study
  Country: US (occurrence: US)
  Receive Date: 20221109
  Receipt Date: 20230127
  Transmission Date: 20230418
  Serious: Yes (Life-Threatening, Hospitalization, Other)
  Sender: FDA-Public Use
  Company Number: US-SUN PHARMACEUTICAL INDUSTRIES LTD-2022R1-362437

PATIENT
  Sex: Male

DRUGS (1)
  1. CLOZAPINE [Suspect]
     Active Substance: CLOZAPINE
     Indication: Schizoaffective disorder
     Dosage: 100 MILLIGRAM, BID
     Route: 048

REACTIONS (6)
  - Acute respiratory failure [Unknown]
  - Dependence on respirator [Unknown]
  - Autism spectrum disorder [Unknown]
  - Psychotic disorder [Unknown]
  - Schizoaffective disorder [Unknown]
  - Neutrophilia [Recovering/Resolving]
